FAERS Safety Report 7677536-3 (Version None)
Quarter: 2011Q3

REPORT INFORMATION
  Report Type: 
  Country: None (occurrence: None)
  Receive Date: 20110811
  Receipt Date: 20110804
  Transmission Date: 20111222
  Serious: Yes (Hospitalization)
  Sender: FDA-Public Use
  Company Number: US-NOVOPROD-330624

PATIENT
  Sex: Female
  Weight: 61.224 kg

DRUGS (7)
  1. LEVEMIR [Suspect]
     Dosage: SLIDING SCALE
     Route: 058
  2. METOPROLOL TARTRATE [Concomitant]
     Indication: HYPERTENSION
     Dosage: 50 MG, QD, NIGHT
  3. LEVEMIR [Suspect]
     Indication: TYPE 2 DIABETES MELLITUS
     Dosage: 34 U, QD, AT NIGHT
     Route: 058
     Dates: start: 20090101
  4. GLIMEPIRIDE [Concomitant]
     Indication: TYPE 2 DIABETES MELLITUS
     Dosage: 4 MG, BID
  5. AMLODIPINE [Concomitant]
     Indication: HYPERTENSION
     Dosage: 10 MG, QD
  6. DIOVAN [Concomitant]
     Indication: HYPERTENSION
     Dosage: 160 MG, QD, MORNING
  7. LEVOTHYROXINE SODIUM [Concomitant]
     Indication: THYROID DISORDER
     Dosage: 125 MG, QD

REACTIONS (1)
  - CEREBROVASCULAR ACCIDENT [None]
